FAERS Safety Report 7259767-X (Version None)
Quarter: 2011Q1

REPORT INFORMATION
  Report Type: 
  Country: None (occurrence: None)
  Receive Date: 20110130
  Receipt Date: 20100915
  Transmission Date: 20110831
  Serious: No
  Sender: FDA-Public Use
  Company Number: US-ABBOTT-10P-163-0671117-00

PATIENT
  Age: 29 Year
  Sex: Female

DRUGS (5)
  1. ALLEGRA D 24 HOUR [Concomitant]
     Indication: HYPERSENSITIVITY
  2. IRON [Concomitant]
     Indication: VITAMIN SUPPLEMENTATION
  3. UNKNOWN MEDICATION [Concomitant]
     Indication: CONTRACEPTION
  4. UNKNOWN MEDICATION (NASAL RINSE) [Concomitant]
     Indication: PRODUCT USED FOR UNKNOWN INDICATION
  5. HUMIRA [Suspect]
     Indication: CROHN'S DISEASE
     Dates: start: 20100601

REACTIONS (2)
  - INJECTION SITE SWELLING [None]
  - INJECTION SITE ERYTHEMA [None]
